FAERS Safety Report 25727205 (Version 1)
Quarter: 2025Q3

REPORT INFORMATION
  Report Type: Spontaneous
  Country: US (occurrence: US)
  Receive Date: 20250826
  Receipt Date: 20250826
  Transmission Date: 20251020
  Serious: Yes (Other)
  Sender: MYLAN
  Company Number: US-MYLANLABS-2025M1070782

PATIENT
  Age: 5 Decade
  Sex: Female

DRUGS (9)
  1. METHOTREXATE [Suspect]
     Active Substance: METHOTREXATE
     Indication: Dermatomyositis
  2. PREDNISONE [Suspect]
     Active Substance: PREDNISONE
     Indication: Dermatomyositis
     Dosage: 12.5 MILLIGRAM, QD (SYSTEMIC)
  3. PREDNISONE [Suspect]
     Active Substance: PREDNISONE
  4. HYDROXYCHLOROQUINE [Suspect]
     Active Substance: HYDROXYCHLOROQUINE
     Indication: Dermatomyositis
  5. RITUXIMAB [Suspect]
     Active Substance: RITUXIMAB
     Indication: Dermatomyositis
  6. APREMILAST [Suspect]
     Active Substance: APREMILAST
     Indication: Dermatomyositis
     Dosage: 300 MILLIGRAM, BID (SYSTEMIC)
  7. AZATHIOPRINE [Suspect]
     Active Substance: AZATHIOPRINE
     Indication: Dermatomyositis
     Dosage: 50 MILLIGRAM, BID (SYSTEMIC)
  8. Immunoglobulin [Concomitant]
     Indication: Dermatomyositis
  9. MYCOPHENOLATE MOFETIL [Concomitant]
     Active Substance: MYCOPHENOLATE MOFETIL
     Indication: Dermatomyositis
     Dosage: 1500 MILLIGRAM, BID (SYSTEMIC)

REACTIONS (4)
  - Treatment failure [Unknown]
  - Steroid diabetes [Unknown]
  - Metabolic dysfunction-associated steatohepatitis [Unknown]
  - Off label use [Unknown]
